FAERS Safety Report 5196703-4 (Version None)
Quarter: 2006Q4

REPORT INFORMATION
  Report Type: 
  Country: None (occurrence: None)
  Receive Date: 20061228
  Receipt Date: 20061228
  Transmission Date: 20070319
  Serious: Yes (Other)
  Sender: FDA-Public Use
  Company Number: None

PATIENT
  Age: 39 Year
  Sex: Female
  Weight: 97.6 kg

DRUGS (2)
  1. LYRICA [Suspect]
     Indication: ANALGESIC THERAPY
     Dosage: 100MG/4 CAPSULES TID PO
     Route: 048
     Dates: start: 20061204, end: 20061220
  2. LYRICA [Suspect]
     Indication: NEURALGIA
     Dosage: 100MG/4 CAPSULES TID PO
     Route: 048
     Dates: start: 20061204, end: 20061220

REACTIONS (1)
  - MUSCLE TWITCHING [None]
